FAERS Safety Report 6338491-1 (Version None)
Quarter: 2009Q3

REPORT INFORMATION
  Report Type: 
  Country: None (occurrence: None)
  Receive Date: 20090901
  Receipt Date: 20090821
  Transmission Date: 20100115
  Serious: Yes (Hospitalization)
  Sender: FDA-Public Use
  Company Number: GXKR2009GR09484

PATIENT
  Age: 57 Year
  Sex: Male

DRUGS (3)
  1. ASPIRIN [Suspect]
     Dosage: 325 MG, ORAL
     Route: 048
  2. LANSOPRAZOLE [Concomitant]
  3. LISINOPRIL [Concomitant]

REACTIONS (6)
  - HAEMOGLOBIN DECREASED [None]
  - NAUSEA [None]
  - OVERDOSE [None]
  - PERIRENAL HAEMATOMA [None]
  - SELF-MEDICATION [None]
  - TENDERNESS [None]
